FAERS Safety Report 12137030 (Version 1)
Quarter: 2016Q1

REPORT INFORMATION
  Report Type: Spontaneous
  Country: US (occurrence: US)
  Receive Date: 20160302
  Receipt Date: 20160302
  Transmission Date: 20160526
  Serious: No
  Sender: FDA-Public Use
  Company Number: US-PERRIGO-15US010128

PATIENT
  Age: 68 Year
  Sex: Female
  Weight: 42.63 kg

DRUGS (2)
  1. LOPERAMIDE HYDROCHLORIDE. [Suspect]
     Active Substance: LOPERAMIDE HYDROCHLORIDE
     Dosage: 2 MG TO 4 MG AFTER EACH LOOSE STOOL, UP TO TOTAL OF 8 MG TO 10 MG, QD
     Route: 048
     Dates: start: 201511
  2. LOPERAMIDE HYDROCHLORIDE. [Suspect]
     Active Substance: LOPERAMIDE HYDROCHLORIDE
     Indication: DIARRHOEA
     Dosage: TOTAL OF 12 MG TO 16 MG, QD
     Route: 048
     Dates: start: 201507, end: 201511

REACTIONS (3)
  - Incorrect dose administered [Unknown]
  - No adverse event [Recovered/Resolved]
  - Incorrect drug administration duration [Unknown]

NARRATIVE: CASE EVENT DATE: 201509
